FAERS Safety Report 24526862 (Version 1)
Quarter: 2024Q4

REPORT INFORMATION
  Report Type: Spontaneous
  Country: IT (occurrence: IT)
  Receive Date: 20241021
  Receipt Date: 20241021
  Transmission Date: 20250115
  Serious: No
  Sender: ROCHE
  Company Number: IT-ROCHE-3561386

PATIENT
  Age: 70 Year
  Sex: Male

DRUGS (3)
  1. VEMURAFENIB [Suspect]
     Active Substance: VEMURAFENIB
     Indication: Erdheim-Chester disease
     Route: 065
  2. RAMIPRIL [Concomitant]
     Active Substance: RAMIPRIL
  3. DESMOPRESSIN [Concomitant]
     Active Substance: DESMOPRESSIN

REACTIONS (1)
  - Rash papular [Recovering/Resolving]
